FAERS Safety Report 10507129 (Version 1)
Quarter: 2014Q4

REPORT INFORMATION
  Report Type: Report from Study
  Country: NL (occurrence: NL)
  Receive Date: 20141009
  Receipt Date: 20141009
  Transmission Date: 20150528
  Serious: Yes (Death)
  Sender: FDA-Public Use
  Company Number: NL-AMGEN-NLDSL2014077454

PATIENT
  Age: 70 Year
  Sex: Female

DRUGS (2)
  1. CALCI CHEW D3 [Concomitant]
     Active Substance: CALCIUM CARBONATE\CHOLECALCIFEROL
     Dosage: 500 MG/400 IE, QD
     Route: 048
  2. XGEVA [Suspect]
     Active Substance: DENOSUMAB
     Indication: PRODUCT USED FOR UNKNOWN INDICATION
     Dosage: 1.7 ML(70MG/ML), Q4WK
     Route: 058
     Dates: start: 20140605

REACTIONS (1)
  - Death [Fatal]

NARRATIVE: CASE EVENT DATE: 20141007
